FAERS Safety Report 22265372 (Version 2)
Quarter: 2024Q2

REPORT INFORMATION
  Report Type: Spontaneous
  Country: US (occurrence: US)
  Receive Date: 20230428
  Receipt Date: 20240410
  Transmission Date: 20240716
  Serious: Yes (Other)
  Sender: FDA-Public Use
  Company Number: US-ABBVIE-4741072

PATIENT
  Age: 20 Year
  Sex: Male

DRUGS (4)
  1. VENETOCLAX [Suspect]
     Active Substance: VENETOCLAX
     Indication: Acute myeloid leukaemia
     Dosage: 47 MG/M2, CLIA/VEN/GO 1 CYCLE.
     Route: 048
  2. VENETOCLAX [Suspect]
     Active Substance: VENETOCLAX
     Indication: Acute myeloid leukaemia
     Dosage: 93 MG/M2 DEC/VEN, 9 CYCLE
     Route: 048
  3. GEMTUZUMAB OZOGAMICIN [Suspect]
     Active Substance: GEMTUZUMAB OZOGAMICIN
     Indication: Acute myeloid leukaemia
     Dosage: CLIA/VEN/GO 47MG/M2/ CYCLE 1
     Route: 065
  4. DECITABINE [Suspect]
     Active Substance: DECITABINE
     Indication: Acute myeloid leukaemia
     Dosage: VEN/DEC REGIMEN 93MG/M2 CYCLE 9
     Route: 065

REACTIONS (2)
  - Febrile neutropenia [Unknown]
  - Off label use [Unknown]
